FAERS Safety Report 9221896 (Version 1)
Quarter: 2013Q1

REPORT INFORMATION
  Report Type: Spontaneous
  Country: US (occurrence: None)
  Receive Date: 20120907
  Receipt Date: 20120907
  Transmission Date: 20140127
  Serious: No
  Sender: FDA-Public Use
  Company Number: TH-2012-00485

PATIENT
  Sex: Male

DRUGS (7)
  1. EGRIFTA [Suspect]
     Indication: LIPODYSTROPHY ACQUIRED
     Route: 058
     Dates: start: 20120416, end: 201206
  2. SOLINGEN [Concomitant]
  3. KALETRA (LOPINAVIR) [Concomitant]
  4. ZIAGEN (ABACAVIR SULFATE) [Concomitant]
  5. TRUVADA (EMTRICITABINE) [Concomitant]
  6. SEPTRA DS (SULFAMETHOXAZOLE, TRIMETHOPRIM) [Concomitant]
  7. LISINOPRIL (LISINOPRIL) [Concomitant]

REACTIONS (3)
  - Carpal tunnel syndrome [None]
  - Myalgia [None]
  - Arthritis [None]
